FAERS Safety Report 7218625-7 (Version None)
Quarter: 2011Q1

REPORT INFORMATION
  Report Type: 
  Country: None (occurrence: None)
  Receive Date: 20110110
  Receipt Date: 20101231
  Transmission Date: 20110831
  Serious: Yes (Death)
  Sender: FDA-Public Use
  Company Number: US-PFIZER INC-2011000490

PATIENT
  Age: 40 Year
  Sex: Female

DRUGS (5)
  1. PHENCYCLIDINE [Suspect]
     Route: 048
  2. QUETIAPINE [Suspect]
     Route: 048
  3. ACETAMINOPHEN [Suspect]
     Dosage: UNK
     Route: 048
  4. GABAPENTIN [Suspect]
     Route: 048
  5. ZIPRASIDONE HCL [Suspect]
     Route: 048

REACTIONS (3)
  - CARDIAC ARREST [None]
  - COMPLETED SUICIDE [None]
  - RESPIRATORY ARREST [None]
